FAERS Safety Report 7220094-8 (Version None)
Quarter: 2011Q1

REPORT INFORMATION
  Report Type: 
  Country: None (occurrence: None)
  Receive Date: 20110111
  Receipt Date: 20110106
  Transmission Date: 20110831
  Serious: Yes (Hospitalization)
  Sender: FDA-Public Use
  Company Number: B0666754A

PATIENT
  Sex: Male

DRUGS (6)
  1. PAXIL [Suspect]
     Indication: PANIC DISORDER
     Dosage: 20MG PER DAY
     Route: 048
     Dates: start: 20070222, end: 20070302
  2. LEXOTAN [Concomitant]
     Indication: PANIC DISORDER
     Route: 048
     Dates: start: 20060101
  3. DOGMATYL [Suspect]
     Dosage: 300MG PER DAY
     Route: 048
  4. ABILIFY [Concomitant]
     Indication: PANIC DISORDER
     Route: 048
     Dates: start: 20060101, end: 20070101
  5. OLANZAPINE [Concomitant]
     Indication: PANIC DISORDER
     Route: 048
     Dates: start: 20090101, end: 20090101
  6. LORAZEPAM [Suspect]
     Indication: PANIC DISORDER
     Dosage: 1.5MG PER DAY
     Route: 048
     Dates: start: 20070305

REACTIONS (6)
  - LOGORRHOEA [None]
  - IRRITABILITY [None]
  - NAUSEA [None]
  - EUPHORIC MOOD [None]
  - AGITATION [None]
  - DRUG WITHDRAWAL SYNDROME [None]
